FAERS Safety Report 6409224-5 (Version None)
Quarter: 2009Q4

REPORT INFORMATION
  Report Type: 
  Country: None (occurrence: None)
  Receive Date: 20091019
  Receipt Date: 20091019
  Transmission Date: 20100525
  Serious: Yes (Life-Threatening, Other)
  Sender: FDA-Public Use
  Company Number: None

PATIENT
  Age: 35 Year
  Sex: Female
  Weight: 62 kg

DRUGS (2)
  1. HYPNOREX 400MG SANOFI AVENTIS [Suspect]
     Indication: BIPOLAR DISORDER
     Dosage: 400MG 2 PO
     Route: 048
     Dates: start: 19980101, end: 20060101
  2. CARBA 200MG GLAXOSMITHKLINE [Suspect]
     Indication: HIV INFECTION
     Dosage: 200MG 2 PO
     Route: 048
     Dates: start: 20040101, end: 20060101

REACTIONS (2)
  - SYSTEMIC LUPUS ERYTHEMATOSUS [None]
  - UNEVALUABLE EVENT [None]
